FAERS Safety Report 10563918 (Version 2)
Quarter: 2014Q4

REPORT INFORMATION
  Report Type: Spontaneous
  Country: US (occurrence: US)
  Receive Date: 20141104
  Receipt Date: 20141104
  Transmission Date: 20150529
  Serious: Yes (Hospitalization)
  Sender: FDA-Public Use
  Company Number: CHPA2014US014385

PATIENT
  Age: 79 Year
  Sex: Female

DRUGS (2)
  1. GAS-X [Suspect]
     Active Substance: DIMETHICONE
     Indication: FLATULENCE
     Dosage: 2 DF, UNK
     Route: 048
     Dates: start: 20141022, end: 20141022
  2. ZANTAC [Concomitant]
     Active Substance: RANITIDINE HYDROCHLORIDE
     Indication: PRODUCT USED FOR UNKNOWN INDICATION
     Route: 065

REACTIONS (4)
  - Myocardial infarction [Recovering/Resolving]
  - Asthenia [Not Recovered/Not Resolved]
  - Therapeutic response decreased [Unknown]
  - Eructation [Unknown]

NARRATIVE: CASE EVENT DATE: 20141022
